FAERS Safety Report 8602522-6 (Version None)
Quarter: 2012Q3

REPORT INFORMATION
  Report Type: 
  Country: None (occurrence: None)
  Receive Date: 20120817
  Receipt Date: 20120806
  Transmission Date: 20120928
  Serious: Yes (Other)
  Sender: FDA-Public Use
  Company Number: US-ROCHE-1072046

PATIENT
  Sex: Female

DRUGS (10)
  1. PEGASYS [Suspect]
     Indication: HEPATITIS C
     Route: 058
     Dates: start: 20120516
  2. RIBAVIRIN [Suspect]
     Indication: HEPATITIS C
     Dosage: DIVIDED DOSES AT BEDTIME.
     Route: 048
     Dates: start: 20120516
  3. PEGASYS [Suspect]
     Route: 058
  4. CYMBALTA [Concomitant]
  5. INCIVEK [Suspect]
     Indication: HEPATITIS C
     Route: 048
     Dates: start: 20120516
  6. NEURONTIN [Concomitant]
  7. SEROQUEL [Concomitant]
  8. PEGASYS [Suspect]
  9. DEPAKOTE [Concomitant]
  10. TRAZODONE HYDROCHLORIDE [Concomitant]

REACTIONS (15)
  - ORAL PAIN [None]
  - BACK PAIN [None]
  - SINUSITIS [None]
  - ABDOMINAL PAIN LOWER [None]
  - WHITE BLOOD CELL COUNT DECREASED [None]
  - HEADACHE [None]
  - INTERVERTEBRAL DISC PROTRUSION [None]
  - CANDIDIASIS [None]
  - INSOMNIA [None]
  - BLISTER [None]
  - RASH [None]
  - SOMNOLENCE [None]
  - CHROMATURIA [None]
  - DIZZINESS [None]
  - NECK PAIN [None]
